FAERS Safety Report 10584632 (Version 2)
Quarter: 2014Q4

REPORT INFORMATION
  Report Type: Report from Study
  Country: US (occurrence: US)
  Receive Date: 20141114
  Receipt Date: 20141201
  Transmission Date: 20150529
  Serious: Yes (Other)
  Sender: FDA-Public Use
  Company Number: US-ABBVIE-14K-163-1306835-00

PATIENT
  Age: 65 Year
  Sex: Female
  Weight: 68.1 kg

DRUGS (8)
  1. HUMIRA [Suspect]
     Active Substance: ADALIMUMAB
     Route: 058
     Dates: start: 20141109
  2. LEFLUNOMIDE. [Concomitant]
     Active Substance: LEFLUNOMIDE
     Indication: RHEUMATOID ARTHRITIS
  3. HUMIRA [Suspect]
     Active Substance: ADALIMUMAB
     Indication: RHEUMATOID ARTHRITIS
     Route: 058
     Dates: start: 201402, end: 201404
  4. METOPROLOL [Concomitant]
     Active Substance: METOPROLOL
     Indication: HYPERTENSION
  5. LEVOTHYROXINE [Concomitant]
     Active Substance: LEVOTHYROXINE
     Indication: HYPOTHYROIDISM
  6. HYDROCODONE [Concomitant]
     Active Substance: HYDROCODONE
     Indication: RHEUMATOID ARTHRITIS
     Dosage: 7.5/325
  7. ANAESTHETICS [Suspect]
     Active Substance: UNSPECIFIED INGREDIENT
     Indication: ANAESTHESIA
     Route: 065
     Dates: start: 20140529, end: 20140529
  8. DYAZIDE [Concomitant]
     Active Substance: HYDROCHLOROTHIAZIDE\TRIAMTERENE
     Indication: HYPERTENSION
     Dosage: 25/37.5

REACTIONS (12)
  - Impaired healing [Recovered/Resolved]
  - Hallucination [Recovered/Resolved]
  - Weight decreased [Recovered/Resolved]
  - Anaemia postoperative [Not Recovered/Not Resolved]
  - Procedural haemorrhage [Recovered/Resolved]
  - Oral herpes [Recovered/Resolved]
  - Anxiety [Unknown]
  - Implant site extravasation [Unknown]
  - Decreased appetite [Recovered/Resolved]
  - Furuncle [Recovered/Resolved]
  - Wound drainage [Recovered/Resolved]
  - Impaired gastric emptying [Recovered/Resolved]

NARRATIVE: CASE EVENT DATE: 2014
